FAERS Safety Report 9459459 (Version 7)
Quarter: 2014Q3

REPORT INFORMATION
  Report Type: Report from Study
  Country: AU (occurrence: AU)
  Receive Date: 20130815
  Receipt Date: 20140808
  Transmission Date: 20150326
  Serious: Yes (Hospitalization)
  Sender: FDA-Public Use
  Company Number: AU-ROCHE-1261745

PATIENT
  Age: 47 Year
  Sex: Male

DRUGS (6)
  1. RIBAVIRIN. [Suspect]
     Active Substance: RIBAVIRIN
     Indication: CHRONIC HEPATITIS C
     Dosage: LAST DOSE PRIOR TO EVENT : 28/JUL/2013
     Route: 048
     Dates: start: 20130312, end: 20130728
  2. SODIUM LACTATE. [Concomitant]
     Active Substance: SODIUM LACTATE
  3. PLACEBO [Suspect]
     Active Substance: UNSPECIFIED INGREDIENT
     Indication: CHRONIC HEPATITIS C
     Route: 048
     Dates: start: 20130121, end: 20130211
  4. LORATADINE. [Concomitant]
     Active Substance: LORATADINE
  5. ULTRAVIST [Concomitant]
     Active Substance: IOPROMIDE
  6. PEG-INTERFERON LAMBDA [Suspect]
     Active Substance: PEGINTERFERON LAMBDA-1A
     Indication: CHRONIC HEPATITIS C
     Route: 058
     Dates: start: 20130312, end: 20130722

REACTIONS (1)
  - Jaundice [Recovered/Resolved]

NARRATIVE: CASE EVENT DATE: 20130728
